FAERS Safety Report 8371092-2 (Version None)
Quarter: 2012Q2

REPORT INFORMATION
  Report Type: 
  Country: None (occurrence: None)
  Receive Date: 20120518
  Receipt Date: 20120103
  Transmission Date: 20120825
  Serious: No
  Sender: FDA-Public Use
  Company Number: US-BRISTOL-MYERS SQUIBB COMPANY-16317760

PATIENT
  Age: 56 Year
  Sex: Male
  Weight: 75 kg

DRUGS (5)
  1. NORVIR [Concomitant]
     Indication: HIV INFECTION
  2. EPIVIR [Concomitant]
     Indication: HIV INFECTION
  3. BARACLUDE [Suspect]
     Indication: HEPATITIS B
     Route: 048
  4. LEXIVA [Concomitant]
     Indication: HIV INFECTION
  5. ZERIT [Concomitant]
     Indication: HIV INFECTION

REACTIONS (3)
  - PRURITUS [None]
  - PARAESTHESIA [None]
  - ALOPECIA [None]
